FAERS Safety Report 13831224 (Version 1)
Quarter: 2017Q3

REPORT INFORMATION
  Report Type: Report from Study
  Country: BR (occurrence: BR)
  Receive Date: 20170803
  Receipt Date: 20170803
  Transmission Date: 20171127
  Serious: Yes (Death)
  Sender: FDA-Public Use
  Company Number: PHHY2017BR114099

PATIENT
  Sex: Female

DRUGS (2)
  1. EXELON PATCH [Suspect]
     Active Substance: RIVASTIGMINE
     Indication: DEMENTIA ALZHEIMER^S TYPE
     Route: 062
  2. EXELON [Suspect]
     Active Substance: RIVASTIGMINE TARTRATE
     Indication: DEMENTIA ALZHEIMER^S TYPE
     Dosage: UNK UNK, BID
     Route: 048

REACTIONS (5)
  - Skin exfoliation [Unknown]
  - Asthenia [Fatal]
  - Multiple organ dysfunction syndrome [Fatal]
  - Application site hypersensitivity [Unknown]
  - Application site erythema [Unknown]
